FAERS Safety Report 12591573 (Version 1)
Quarter: 2016Q3

REPORT INFORMATION
  Report Type: Spontaneous
  Country: US (occurrence: None)
  Receive Date: 20160725
  Receipt Date: 20160725
  Transmission Date: 20161109
  Serious: No
  Sender: FDA-Public Use
  Company Number: None

PATIENT
  Age: 54 Year
  Sex: Female
  Weight: 106.6 kg

DRUGS (5)
  1. EFFEXOR [Concomitant]
     Active Substance: VENLAFAXINE HYDROCHLORIDE
  2. TYLENOL [Concomitant]
     Active Substance: ACETAMINOPHEN
  3. LETROZAL [Concomitant]
  4. REMICADE [Suspect]
     Active Substance: INFLIXIMAB
     Indication: COLITIS ULCERATIVE
     Dosage: EVERY 4-6 WEEKS INTO A VEIN
     Route: 042
     Dates: start: 20150901
  5. PANTOSOLUDROL [Concomitant]

REACTIONS (5)
  - Alopecia [None]
  - Headache [None]
  - Impaired quality of life [None]
  - Arthralgia [None]
  - Muscular weakness [None]
